FAERS Safety Report 4700899-5 (Version None)
Quarter: 2005Q2

REPORT INFORMATION
  Report Type: 
  Country: None (occurrence: None)
  Receive Date: 20050624
  Receipt Date: 20050610
  Transmission Date: 20051028
  Serious: Yes (Other)
  Sender: FDA-Public Use
  Company Number: 2005-06-0806

PATIENT
  Age: 93 Year
  Sex: Female

DRUGS (2)
  1. NITRO-DUR [Suspect]
     Indication: ANGINA PECTORIS
     Dosage: TRANSDERMAL
     Route: 062
  2. NITRO-DUR [Suspect]
     Indication: ARRHYTHMIA
     Dosage: TRANSDERMAL
     Route: 062

REACTIONS (4)
  - APNOEA [None]
  - CARDIOVASCULAR DISORDER [None]
  - DRUG INEFFECTIVE [None]
  - PHARMACEUTICAL PRODUCT COMPLAINT [None]
